FAERS Safety Report 5341959-8 (Version None)
Quarter: 2007Q2

REPORT INFORMATION
  Report Type: 
  Country: None (occurrence: None)
  Receive Date: 20070601
  Receipt Date: 20070523
  Transmission Date: 20071010
  Serious: Yes (Hospitalization)
  Sender: FDA-Public Use
  Company Number: JP-ROCHE-499449

PATIENT
  Age: 11 Year
  Sex: Male
  Weight: 34 kg

DRUGS (3)
  1. TAMIFLU [Suspect]
     Dosage: FORM: DRY SYRUP.
     Route: 048
     Dates: start: 20070220, end: 20070225
  2. HOKUNALIN [Concomitant]
     Dosage: DOSE FORM: TAPE.
     Route: 061
  3. ANHIBA [Concomitant]
     Route: 054

REACTIONS (2)
  - DELIRIUM [None]
  - PERIPHERAL VASCULAR DISORDER [None]
